FAERS Safety Report 11792758 (Version 1)
Quarter: 2015Q4

REPORT INFORMATION
  Report Type: Spontaneous
  Country: US (occurrence: None)
  Receive Date: 20151130
  Receipt Date: 20151130
  Transmission Date: 20160305
  Serious: Yes (Hospitalization, Other)
  Sender: FDA-Public Use
  Company Number: 2015US-106387

PATIENT
  Age: 82 Year
  Sex: Female

DRUGS (2)
  1. ACETAMINOPHEN (PARACETAMOL) UNKNOWN [Suspect]
     Active Substance: ACETAMINOPHEN
     Indication: PRODUCT USED FOR UNKNOWN INDICATION
  2. QUETIAPINE (QUETIAPINE) UNKNOWN, UNKNOWN [Suspect]
     Active Substance: QUETIAPINE
     Indication: PARANOIA

REACTIONS (5)
  - Intentional overdose [None]
  - Bradycardia [None]
  - Hypoxia [None]
  - Lethargy [None]
  - Hypotension [None]
